FAERS Safety Report 7284577-7 (Version None)
Quarter: 2011Q1

REPORT INFORMATION
  Report Type: 
  Country: None (occurrence: None)
  Receive Date: 20110210
  Receipt Date: 20110202
  Transmission Date: 20110831
  Serious: Yes (Hospitalization)
  Sender: FDA-Public Use
  Company Number: US-BIOGENIDEC-2010BI009530

PATIENT
  Age: 50 Year
  Sex: Female
  Weight: 83 kg

DRUGS (2)
  1. AVONEX [Suspect]
     Indication: MULTIPLE SCLEROSIS
     Route: 030
     Dates: start: 20090219
  2. MEGACE [Concomitant]
     Indication: ENDOMETRIAL SARCOMA

REACTIONS (8)
  - UPPER LIMB FRACTURE [None]
  - SPEECH DISORDER [None]
  - MEMORY IMPAIRMENT [None]
  - MULTIPLE SCLEROSIS RELAPSE [None]
  - VISUAL IMPAIRMENT [None]
  - BALANCE DISORDER [None]
  - ANKLE FRACTURE [None]
  - FALL [None]
